FAERS Safety Report 7995384-1 (Version None)
Quarter: 2011Q4

REPORT INFORMATION
  Report Type: 
  Country: None (occurrence: None)
  Receive Date: 20111220
  Receipt Date: 20111216
  Transmission Date: 20120403
  Serious: Yes (Hospitalization)
  Sender: FDA-Public Use
  Company Number: BR-ABBOTT-11P-020-0884095-00

PATIENT
  Sex: Female
  Weight: 78 kg

DRUGS (4)
  1. NIMESULIDE [Concomitant]
     Indication: RHEUMATOID ARTHRITIS
     Route: 048
  2. DEFLAZACORT [Concomitant]
     Indication: RHEUMATOID ARTHRITIS
     Route: 048
  3. HUMIRA [Suspect]
     Indication: RHEUMATOID ARTHRITIS
     Route: 058
     Dates: start: 20101219
  4. GLUCOSAMINE [Concomitant]
     Indication: RHEUMATOID ARTHRITIS
     Route: 048

REACTIONS (7)
  - PYREXIA [None]
  - LARYNGITIS [None]
  - OSTEOARTHRITIS [None]
  - PHARYNGITIS [None]
  - ANAEMIA [None]
  - WEIGHT DECREASED [None]
  - MASS [None]
